FAERS Safety Report 6213001-8 (Version None)
Quarter: 2009Q2

REPORT INFORMATION
  Report Type: 
  Country: None (occurrence: None)
  Receive Date: 20090602
  Receipt Date: 20090602
  Transmission Date: 20091009
  Serious: Yes (Other)
  Sender: FDA-Public Use
  Company Number: None

PATIENT
  Age: 74 Year
  Sex: Female
  Weight: 81.6475 kg

DRUGS (1)
  1. PROVENTIL-HFA [Suspect]
     Indication: ASTHMA
     Dosage: 2 SPRAYS AS NEEDED INHAL
     Route: 055
     Dates: start: 20090101, end: 20090601

REACTIONS (3)
  - DRUG EFFECT DECREASED [None]
  - DYSPNOEA [None]
  - PRODUCT SUBSTITUTION ISSUE [None]
